FAERS Safety Report 21846429 (Version 1)
Quarter: 2023Q1

REPORT INFORMATION
  Report Type: Spontaneous
  Country: GB (occurrence: GB)
  Receive Date: 20230111
  Receipt Date: 20230111
  Transmission Date: 20230417
  Serious: Yes (Hospitalization, Disabling, Other)
  Sender: FDA-Public Use
  Company Number: None

PATIENT
  Age: 72 Year

DRUGS (9)
  1. AMELUZ [Suspect]
     Active Substance: AMINOLEVULINIC ACID HYDROCHLORIDE
     Indication: Product used for unknown indication
     Dosage: 78MG/G
  2. AMLODIPINE [Concomitant]
     Active Substance: AMLODIPINE BESYLATE
     Dosage: IN THE MORNING - REPEAT MEDICATION
  3. ATORVASTATIN [Concomitant]
     Active Substance: ATORVASTATIN
     Dosage: AT NIGHT - REPEAT MEDICATION
     Dates: start: 20221221
  4. BENDROFLUMETHIAZIDE [Concomitant]
     Active Substance: BENDROFLUMETHIAZIDE
     Dosage: IN THE MORNING - NOT USING
     Dates: end: 20221221
  5. DEXAMETHASONE [Concomitant]
     Active Substance: DEXAMETHASONE
     Dosage: ACUTE MEDICATION
  6. LISINOPRIL [Concomitant]
     Active Substance: LISINOPRIL
     Dosage: IN THE MORNING - REPEAT MEDICATION
  7. OMEPRAZOLE [Concomitant]
     Active Substance: OMEPRAZOLE
     Dosage: IN THE MORNING - ACUTE WHILST ON DEXAMETHASONE
  8. ACETAMINOPHEN [Concomitant]
     Active Substance: ACETAMINOPHEN
     Dosage: 500MG-1G TO BE TAKEN FOUR TIMES DAILY
  9. TRAMADOL [Concomitant]
     Active Substance: TRAMADOL
     Dosage: 50-100MG - TO BE TAKEN FOUR TIMES DAILY
     Dates: start: 20221221

REACTIONS (1)
  - Hypotension [Recovered/Resolved]
